FAERS Safety Report 7595088-3 (Version None)
Quarter: 2011Q3

REPORT INFORMATION
  Report Type: 
  Country: None (occurrence: None)
  Receive Date: 20110707
  Receipt Date: 20110705
  Transmission Date: 20111222
  Serious: Yes (Other)
  Sender: FDA-Public Use
  Company Number: US-PFIZER INC-2011151042

PATIENT
  Sex: Female
  Weight: 72.562 kg

DRUGS (5)
  1. CHANTIX [Suspect]
     Dosage: 1 MG, 2X/DAY
     Route: 048
     Dates: start: 20110101
  2. ESTRADIOL [Concomitant]
     Dosage: THREE TIMES A WEEK ON MONDAY, WEDNESDAY AND FRIDAY
  3. CHANTIX [Suspect]
     Indication: SMOKING CESSATION THERAPY
     Dosage: 0.5 MG, 1X/DAY
     Route: 048
     Dates: start: 20110407, end: 20110101
  4. ASPIRIN [Concomitant]
     Dosage: 81 MG, 1X/DAY
  5. OMEPRAZOLE [Concomitant]
     Dosage: 20 MG, 1X/DAY

REACTIONS (3)
  - APHONIA [None]
  - DYSPHAGIA [None]
  - OROPHARYNGEAL PAIN [None]
